FAERS Safety Report 17784296 (Version 1)
Quarter: 2020Q3

REPORT INFORMATION
  Report Type: Report from Study
  Country: DO (occurrence: DO)
  Receive Date: 20200514
  Receipt Date: 20200514
  Transmission Date: 20201105
  Serious: Yes (Other)
  Sender: FDA-Public Use
  Company Number: PHHY2018DO124818

PATIENT
  Age: 73 Year
  Sex: Female

DRUGS (2)
  1. EXFORGE [Suspect]
     Active Substance: AMLODIPINE BESYLATE\VALSARTAN
     Indication: PRODUCT USED FOR UNKNOWN INDICATION
     Dosage: (AMLODIPINE 5 MG, VALSARTAN 80 MG)
     Route: 065
  2. DIOVAN [Suspect]
     Active Substance: VALSARTAN
     Indication: PRODUCT USED FOR UNKNOWN INDICATION
     Dosage: 160 MG
     Route: 065

REACTIONS (7)
  - Anger [Unknown]
  - Hypoacusis [Unknown]
  - Feeling abnormal [Unknown]
  - Hypertension [Unknown]
  - Diabetes mellitus [Unknown]
  - Memory impairment [Unknown]
  - Fluid retention [Unknown]
